FAERS Safety Report 9245044 (Version 1)
Quarter: 2013Q2

REPORT INFORMATION
  Report Type: Spontaneous
  Country: US (occurrence: US)
  Receive Date: 20130422
  Receipt Date: 20130422
  Transmission Date: 20140414
  Serious: No
  Sender: FDA-Public Use
  Company Number: US-009507513-1304USA010630

PATIENT
  Age: 50 Year
  Sex: Male

DRUGS (4)
  1. SAPHRIS [Suspect]
     Indication: SCHIZOAFFECTIVE DISORDER
     Dosage: 10 MG TABLET RAPID DISSOLVE, QD
     Route: 048
     Dates: start: 2013, end: 2013
  2. EFFEXOR [Concomitant]
  3. RISPERIDONE [Concomitant]
  4. CARBAMAZEPINE [Concomitant]

REACTIONS (3)
  - Nausea [Not Recovered/Not Resolved]
  - Vomiting [Not Recovered/Not Resolved]
  - Decreased appetite [Not Recovered/Not Resolved]
